FAERS Safety Report 5321165-3 (Version None)
Quarter: 2007Q2

REPORT INFORMATION
  Report Type: 
  Country: None (occurrence: None)
  Receive Date: 20070504
  Receipt Date: 20070419
  Transmission Date: 20071010
  Serious: Yes (Hospitalization)
  Sender: FDA-Public Use
  Company Number: 8023302

PATIENT
  Age: 36 Year
  Sex: Female
  Weight: 120 kg

DRUGS (18)
  1. LORTAB [Suspect]
  2. FENTANYL [Suspect]
     Indication: BREAKTHROUGH PAIN
     Dosage: 600 DF PRN BUC
     Route: 002
     Dates: start: 20050627
  3. MORPHINE [Suspect]
     Dosage: 10 MG PRN IM
     Route: 030
     Dates: start: 20000101
  4. DURAGESIC [Suspect]
     Dosage: 25 DF 1/2D TRD
     Dates: start: 20060927
  5. ZOLPIDEM TARTRATE [Concomitant]
  6. TIAGABINE HCL [Concomitant]
  7. LEVOTHYROXINE SODIUM [Concomitant]
  8. MONTELUKAST SODIUM [Concomitant]
  9. TRIAMCINOLONE ACETONIDE [Concomitant]
  10. XYLOCAINE [Concomitant]
  11. XYREM [Concomitant]
  12. PHENERGAN HCL [Concomitant]
  13. VERAPAMIL [Concomitant]
  14. TOPAMAX [Concomitant]
  15. CLONIDINE [Concomitant]
  16. VITAMIN D [Concomitant]
  17. CARISOPRODOL [Concomitant]
  18. AMITIZA [Concomitant]

REACTIONS (3)
  - ABDOMINAL PAIN [None]
  - CONSTIPATION [None]
  - GASTROINTESTINAL MOTILITY DISORDER [None]
